FAERS Safety Report 5214294-6 (Version None)
Quarter: 2007Q1

REPORT INFORMATION
  Report Type: 
  Country: None (occurrence: None)
  Receive Date: 20070122
  Receipt Date: 20070111
  Transmission Date: 20070707
  Serious: Yes (Hospitalization)
  Sender: FDA-Public Use
  Company Number: US-JNJFOC-20070103603

PATIENT
  Sex: Male
  Weight: 57.61 kg

DRUGS (5)
  1. PREZISTA [Suspect]
     Indication: HIV INFECTION
     Route: 048
  2. FUZEON [Concomitant]
     Indication: HIV INFECTION
     Route: 058
  3. NORVIR [Concomitant]
     Indication: HIV INFECTION
     Route: 048
  4. RETROVIR [Concomitant]
     Indication: HIV INFECTION
     Route: 048
  5. VIREAD [Concomitant]
     Indication: HIV INFECTION
     Route: 048

REACTIONS (3)
  - ANAEMIA [None]
  - LIVER FUNCTION TEST ABNORMAL [None]
  - PYREXIA [None]
